FAERS Safety Report 23557761 (Version 1)
Quarter: 2024Q1

REPORT INFORMATION
  Report Type: Spontaneous
  Country: NL (occurrence: NL)
  Receive Date: 20240223
  Receipt Date: 20240223
  Transmission Date: 20240410
  Serious: Yes (Life-Threatening, Hospitalization, Other)
  Sender: FDA-Public Use
  Company Number: None

PATIENT

DRUGS (1)
  1. CEFTRIAXONE [Suspect]
     Active Substance: CEFTRIAXONE\CEFTRIAXONE SODIUM
     Indication: Urosepsis
     Dosage: 1 DOSAGE FORM, QD
     Route: 065
     Dates: start: 20240114

REACTIONS (3)
  - Renal cortical necrosis [Not Recovered/Not Resolved]
  - Pancreatitis [Not Recovered/Not Resolved]
  - Maternal exposure during pregnancy [Unknown]
